FAERS Safety Report 7888041-3 (Version None)
Quarter: 2011Q4

REPORT INFORMATION
  Report Type: 
  Country: None (occurrence: None)
  Receive Date: 20111103
  Receipt Date: 20111026
  Transmission Date: 20120403
  Serious: Yes (Hospitalization)
  Sender: FDA-Public Use
  Company Number: FR-JNJFOC-20111011733

PATIENT
  Age: 91 Year
  Sex: Female

DRUGS (1)
  1. LEVOFLOXACIN [Suspect]
     Indication: CAT SCRATCH DISEASE
     Route: 048
     Dates: start: 20110904, end: 20110913

REACTIONS (5)
  - CONVULSION [None]
  - CONFUSIONAL STATE [None]
  - DROOLING [None]
  - INAPPROPRIATE SCHEDULE OF DRUG ADMINISTRATION [None]
  - LOSS OF CONSCIOUSNESS [None]
